FAERS Safety Report 25544457 (Version 2)
Quarter: 2025Q3

REPORT INFORMATION
  Report Type: Report from Study
  Country: EU (occurrence: EU)
  Receive Date: 20250711
  Receipt Date: 20250716
  Transmission Date: 20251021
  Serious: Yes (Hospitalization)
  Sender: ABBVIE
  Company Number: EU-ABBVIE-6366160

PATIENT
  Age: 78 Year
  Sex: Male

DRUGS (2)
  1. CARBIDOPA\LEVODOPA [Suspect]
     Active Substance: CARBIDOPA\LEVODOPA
     Indication: Parkinson^s disease
     Route: 050
     Dates: start: 20220602
  2. CARBIDOPA\LEVODOPA [Suspect]
     Active Substance: CARBIDOPA\LEVODOPA

REACTIONS (10)
  - Malnutrition [Not Recovered/Not Resolved]
  - Delirium [Unknown]
  - Hypersexuality [Unknown]
  - Agitation [Unknown]
  - Stoma site infection [Recovering/Resolving]
  - Abnormal behaviour [Recovered/Resolved]
  - Incoherent [Unknown]
  - SARS-CoV-2 test positive [Recovering/Resolving]
  - Dysphagia [Not Recovered/Not Resolved]
  - Impulse-control disorder [Unknown]

NARRATIVE: CASE EVENT DATE: 20250701
